FAERS Safety Report 4918198-5 (Version None)
Quarter: 2006Q1

REPORT INFORMATION
  Report Type: 
  Country: None (occurrence: None)
  Receive Date: 20060215
  Receipt Date: 20050202
  Transmission Date: 20060701
  Serious: Yes (Hospitalization)
  Sender: FDA-Public Use
  Company Number: 13407

PATIENT
  Age: 56 Year
  Sex: Male

DRUGS (3)
  1. VINCRISTINE [Suspect]
     Indication: B-CELL LYMPHOMA
  2. LOMUSTINE [Suspect]
     Indication: B-CELL LYMPHOMA
  3. PROCARBAZINE [Suspect]
     Indication: B-CELL LYMPHOMA

REACTIONS (2)
  - GENERAL PHYSICAL HEALTH DETERIORATION [None]
  - TOXIC EPIDERMAL NECROLYSIS [None]
